FAERS Safety Report 9529889 (Version 1)
Quarter: 2013Q3

REPORT INFORMATION
  Report Type: Spontaneous
  Country: FR (occurrence: FR)
  Receive Date: 20130917
  Receipt Date: 20130917
  Transmission Date: 20140515
  Serious: Yes (Hospitalization, Other)
  Sender: FDA-Public Use
  Company Number: FR-ASTRAZENECA-2013SE69212

PATIENT
  Age: 24110 Day
  Sex: Male

DRUGS (14)
  1. INEXIUM [Suspect]
     Route: 048
     Dates: start: 20130521, end: 20130526
  2. BRILIQUE [Suspect]
     Indication: MYOCARDIAL INFARCTION
     Route: 048
     Dates: start: 20130520, end: 20130526
  3. TRIATEC [Suspect]
     Route: 048
     Dates: start: 2009
  4. TRIATEC [Suspect]
     Route: 048
     Dates: start: 20130521
  5. TRIATEC [Suspect]
     Route: 048
     Dates: end: 20130526
  6. VISIPAQUE [Suspect]
     Indication: CATHETERISATION CARDIAC
     Dosage: 320 MG IODINE/ML, 200 ML ONCE
     Route: 042
     Dates: start: 20130520, end: 20130520
  7. VISIPAQUE [Suspect]
     Indication: CATHETERISATION CARDIAC
     Route: 042
     Dates: start: 20130612, end: 20130612
  8. INSPRA [Suspect]
     Route: 048
     Dates: start: 20130521, end: 20130526
  9. LOVENOX [Suspect]
     Indication: MYOCARDIAL INFARCTION
     Route: 058
     Dates: start: 20130520, end: 20130524
  10. LEVETIRACETAM [Concomitant]
  11. KARDEGIC [Concomitant]
  12. TAHOR [Concomitant]
     Dates: start: 2009
  13. TAHOR [Concomitant]
     Dates: start: 20130521
  14. BISOCE [Concomitant]

REACTIONS (7)
  - Renal failure acute [Recovered/Resolved]
  - Rash scarlatiniform [Recovered/Resolved]
  - Toxic skin eruption [Unknown]
  - Pruritus [Recovered/Resolved]
  - Rash pruritic [Unknown]
  - Oedema peripheral [Unknown]
  - Therapy cessation [Unknown]
